FAERS Safety Report 12915760 (Version 1)
Quarter: 2016Q4

REPORT INFORMATION
  Report Type: Spontaneous
  Country: US (occurrence: US)
  Receive Date: 20161103
  Receipt Date: 20161103
  Transmission Date: 20170207
  Serious: Yes (Hospitalization)
  Sender: FDA-Public Use
  Company Number: None

PATIENT
  Age: 52 Year
  Sex: Female
  Weight: 82 kg

DRUGS (2)
  1. MEMANTINE HYDROCHLORIDE. [Suspect]
     Active Substance: MEMANTINE HYDROCHLORIDE
     Dates: end: 20161009
  2. LISINOPRIL. [Concomitant]
     Active Substance: LISINOPRIL

REACTIONS (14)
  - Cerebrovascular accident [None]
  - Paraesthesia [None]
  - Metastases to lung [None]
  - Pyrexia [None]
  - Intracranial mass [None]
  - Cushingoid [None]
  - Diabetes mellitus [None]
  - Pain in extremity [None]
  - Muscle spasms [None]
  - Heart rate increased [None]
  - Malignant neoplasm progression [None]
  - Hyperglycaemia [None]
  - Limb discomfort [None]
  - Blood pressure systolic increased [None]

NARRATIVE: CASE EVENT DATE: 20161010
